FAERS Safety Report 21332290 (Version 1)
Quarter: 2022Q3

REPORT INFORMATION
  Report Type: Report from Study
  Country: US (occurrence: US)
  Receive Date: 20220914
  Receipt Date: 20220914
  Transmission Date: 20221027
  Serious: Yes (Hospitalization, Other)
  Sender: FDA-Public Use
  Company Number: US-GILEAD-2022-0596657

PATIENT
  Age: 68 Year
  Sex: Female
  Weight: 70.295 kg

DRUGS (13)
  1. AMBRISENTAN [Suspect]
     Active Substance: AMBRISENTAN
     Indication: Pulmonary arterial hypertension
     Dosage: 10 MG, QD
     Route: 048
     Dates: start: 20160310
  2. VITAMIN A [Concomitant]
     Active Substance: VITAMIN A
  3. SPIRONOLACTONE [Concomitant]
     Active Substance: SPIRONOLACTONE
  4. URSODIOL [Concomitant]
     Active Substance: URSODIOL
  5. LOPERAMIDE [Concomitant]
     Active Substance: LOPERAMIDE
  6. HERBALS\PLANTAGO OVATA LEAF [Concomitant]
     Active Substance: HERBALS\PLANTAGO OVATA LEAF
  7. FUROSEMIDE\POTASSIUM CHLORIDE [Concomitant]
     Active Substance: FUROSEMIDE\POTASSIUM CHLORIDE
  8. TRAMADOL [Concomitant]
     Active Substance: TRAMADOL
  9. CEFIXIME [Concomitant]
     Active Substance: CEFIXIME
  10. OMEPRAZOLE [Concomitant]
     Active Substance: OMEPRAZOLE
  11. ADCIRCA [Concomitant]
     Active Substance: TADALAFIL
  12. VITAMIN D3 [Concomitant]
     Active Substance: CHOLECALCIFEROL
  13. FOLIC ACID [Concomitant]
     Active Substance: FOLIC ACID

REACTIONS (1)
  - Hip fracture [Not Recovered/Not Resolved]

NARRATIVE: CASE EVENT DATE: 20210902
